FAERS Safety Report 5212907-6 (Version None)
Quarter: 2007Q1

REPORT INFORMATION
  Report Type: 
  Country: None (occurrence: None)
  Receive Date: 20070117
  Receipt Date: 20070102
  Transmission Date: 20070707
  Serious: Yes (Other)
  Sender: FDA-Public Use
  Company Number: US-1160203

PATIENT
  Sex: Female

DRUGS (2)
  1. POLYMYXIN B SULFATES AND TRIMETHOPRIM SULFATE [Suspect]
     Dosage: (OPHTHALMIC)
     Route: 047
     Dates: start: 20050529
  2. ALBUTEROL [Concomitant]

REACTIONS (4)
  - CHEST DISCOMFORT [None]
  - CORNEAL DISORDER [None]
  - EYE PAIN [None]
  - PHOTOPHOBIA [None]
